FAERS Safety Report 25525337 (Version 1)
Quarter: 2025Q3

REPORT INFORMATION
  Report Type: Spontaneous
  Country: JP (occurrence: JP)
  Receive Date: 20250707
  Receipt Date: 20250707
  Transmission Date: 20251021
  Serious: Yes (Other)
  Sender: FERRING
  Company Number: JP-ferring-EVA202500454FERRINGPH

PATIENT

DRUGS (1)
  1. DINOPROSTONE [Suspect]
     Active Substance: DINOPROSTONE
     Indication: Induction of cervix ripening
     Dosage: 10 MG, ONCE/SINGLE
     Route: 067
     Dates: start: 20241212, end: 20241212

REACTIONS (1)
  - Amniotic cavity infection [Recovered/Resolved]

NARRATIVE: CASE EVENT DATE: 20241212
